FAERS Safety Report 20327631 (Version 2)
Quarter: 2022Q1

REPORT INFORMATION
  Report Type: Report from Study
  Country: US (occurrence: US)
  Receive Date: 20220112
  Receipt Date: 20220121
  Transmission Date: 20220423
  Serious: Yes (Death, Other)
  Sender: FDA-Public Use
  Company Number: US-BAYER-2021P000220

PATIENT
  Age: 78 Year
  Sex: Male
  Weight: 98.866 kg

DRUGS (2)
  1. ADEMPAS [Suspect]
     Active Substance: RIOCIGUAT
     Indication: Pulmonary arterial hypertension
     Dosage: UNK
     Dates: start: 20211214
  2. ADEMPAS [Suspect]
     Active Substance: RIOCIGUAT
     Indication: Pulmonary arterial hypertension
     Dosage: 0.5 MG, TID
     Route: 048

REACTIONS (11)
  - Death [Fatal]
  - Syncope [None]
  - Gastrooesophageal reflux disease [Unknown]
  - Cough [Unknown]
  - Oedema [Unknown]
  - Peripheral swelling [None]
  - Blister [None]
  - Diarrhoea [None]
  - Dyspepsia [None]
  - Oxygen saturation decreased [None]
  - Nervousness [None]

NARRATIVE: CASE EVENT DATE: 20211214
